FAERS Safety Report 7946828-2 (Version None)
Quarter: 2011Q4

REPORT INFORMATION
  Report Type: 
  Country: None (occurrence: None)
  Receive Date: 20111129
  Receipt Date: 20111127
  Transmission Date: 20120403
  Serious: Yes (Other)
  Sender: FDA-Public Use
  Company Number: US-CEPHALON-US021981

PATIENT
  Sex: Female
  Weight: 56 kg

DRUGS (9)
  1. FENTORA [Suspect]
     Route: 002
     Dates: start: 20070601
  2. PRILOSEC [Concomitant]
     Indication: GASTROOESOPHAGEAL REFLUX DISEASE
     Route: 048
  3. FENTORA [Suspect]
     Indication: COMPLEX REGIONAL PAIN SYNDROME
     Route: 002
     Dates: start: 20070601
  4. KEPPRA [Suspect]
     Indication: CONVULSION
     Route: 048
     Dates: start: 20060701
  5. DILANTIN [Suspect]
     Indication: CONVULSION
     Route: 048
     Dates: end: 20071201
  6. DEMEROL [Concomitant]
     Indication: PAIN
     Route: 048
     Dates: start: 20030101
  7. DILANTIN [Suspect]
     Route: 048
     Dates: start: 20071201
  8. VALIUM [Concomitant]
     Indication: PAIN
     Route: 048
  9. RESTORIL [Concomitant]
     Indication: SLEEP DISORDER
     Route: 048
     Dates: start: 20040101

REACTIONS (4)
  - WEIGHT DECREASED [None]
  - DRUG INTERACTION [None]
  - ANTICONVULSANT DRUG LEVEL DECREASED [None]
  - CONVULSION [None]
